FAERS Safety Report 20064689 (Version 1)
Quarter: 2021Q4

REPORT INFORMATION
  Report Type: Report from Study
  Country: CO (occurrence: CO)
  Receive Date: 20211112
  Receipt Date: 20211112
  Transmission Date: 20220303
  Serious: Yes (Other)
  Sender: FDA-Public Use
  Company Number: CO-ABBVIE-21K-036-4151006-00

PATIENT
  Sex: Male
  Weight: 71 kg

DRUGS (1)
  1. VENCLEXTA [Suspect]
     Active Substance: VENETOCLAX
     Indication: Chronic lymphocytic leukaemia
     Dosage: 100MG/DAY AND 200 MG/DAY (INTERCALATED)
     Route: 048
     Dates: start: 20210622

REACTIONS (8)
  - Choking sensation [Recovering/Resolving]
  - Chest discomfort [Recovering/Resolving]
  - Back pain [Recovering/Resolving]
  - Dyspnoea [Recovering/Resolving]
  - Discouragement [Unknown]
  - Fatigue [Unknown]
  - Musculoskeletal discomfort [Recovering/Resolving]
  - Chills [Recovering/Resolving]

NARRATIVE: CASE EVENT DATE: 20210101
